FAERS Safety Report 25965908 (Version 1)
Quarter: 2025Q4

REPORT INFORMATION
  Report Type: Report from Study
  Country: AU (occurrence: AU)
  Receive Date: 20251027
  Receipt Date: 20251027
  Transmission Date: 20260119
  Serious: Yes (Other)
  Sender: ABBVIE
  Company Number: AU-ABBVIE-6516747

PATIENT
  Age: 88 Year
  Sex: Female

DRUGS (2)
  1. CARBIDOPA\LEVODOPA [Suspect]
     Active Substance: CARBIDOPA\LEVODOPA
     Indication: Product used for unknown indication
     Dosage: DUODOPA PUMP
     Route: 050
  2. CARBIDOPA\LEVODOPA [Suspect]
     Active Substance: CARBIDOPA\LEVODOPA

REACTIONS (6)
  - Small intestinal obstruction [Unknown]
  - Device issue [Unknown]
  - Incorrect route of product administration [Unknown]
  - Constipation [Unknown]
  - Device issue [Unknown]
  - Faecaloma [Unknown]

NARRATIVE: CASE EVENT DATE: 20251001
